FAERS Safety Report 7146272-4 (Version None)
Quarter: 2010Q4

REPORT INFORMATION
  Report Type: 
  Country: None (occurrence: None)
  Receive Date: 20101208
  Receipt Date: 20101126
  Transmission Date: 20110411
  Serious: Yes (Death)
  Sender: FDA-Public Use
  Company Number: FR-ACTELION-A-CH2010-42103

PATIENT
  Age: 2 Year
  Sex: Female

DRUGS (1)
  1. TRACLEER [Suspect]
     Indication: PULMONARY ARTERIAL HYPERTENSION
     Dosage: 32 MG, UNK
     Route: 048
     Dates: start: 20100101

REACTIONS (1)
  - PULMONARY ARTERIAL HYPERTENSION [None]
